FAERS Safety Report 4399648-2 (Version None)
Quarter: 2004Q3

REPORT INFORMATION
  Report Type: 
  Country: None (occurrence: None)
  Receive Date: 20040716
  Receipt Date: 20031024
  Transmission Date: 20050211
  Serious: Yes (Life-Threatening, Hospitalization)
  Sender: FDA-Public Use
  Company Number: PHHO2003CA13562

PATIENT
  Age: 27 Year
  Sex: Female

DRUGS (4)
  1. SIMULECT [Suspect]
     Indication: HEART TRANSPLANT
     Dosage: 20 MG, ONCE/SINGLE
     Route: 042
     Dates: start: 20030922, end: 20030922
  2. SIMULECT [Suspect]
     Dosage: 20 MG, ONCE/SINGLE
     Route: 042
     Dates: start: 20030925, end: 20030925
  3. NEORAL [Suspect]
     Indication: HEART TRANSPLANT
     Dates: end: 20031024
  4. CELLCEPT [Concomitant]
     Indication: HEART TRANSPLANT

REACTIONS (4)
  - HAEMOSIDEROSIS [None]
  - HAPTOGLOBIN DECREASED [None]
  - LEUKOERYTHROBLASTIC ANAEMIA [None]
  - MICROANGIOPATHY [None]
